FAERS Safety Report 7925379-5 (Version None)
Quarter: 2011Q4

REPORT INFORMATION
  Report Type: 
  Country: None (occurrence: None)
  Receive Date: 20111118
  Receipt Date: 20110406
  Transmission Date: 20120403
  Serious: No
  Sender: FDA-Public Use
  Company Number: US-AMGEN-USASP2011018225

PATIENT
  Age: 24 Year
  Sex: Female

DRUGS (3)
  1. ENBREL [Suspect]
     Indication: RHEUMATOID ARTHRITIS
     Dates: start: 20000101
  2. HUMIRA [Concomitant]
     Dosage: UNK
     Dates: start: 20090101
  3. REMICADE [Concomitant]
     Dosage: UNK

REACTIONS (3)
  - INJECTION SITE REACTION [None]
  - INJECTION SITE PAIN [None]
  - RHEUMATOID ARTHRITIS [None]
